FAERS Safety Report 12840600 (Version 1)
Quarter: 2016Q4

REPORT INFORMATION
  Report Type: Spontaneous
  Country: US (occurrence: US)
  Receive Date: 20161012
  Receipt Date: 20161012
  Transmission Date: 20170207
  Serious: No
  Sender: FDA-Public Use
  Company Number: US-PFIZER INC-2016475532

PATIENT
  Age: 47 Year
  Sex: Female
  Weight: 54 kg

DRUGS (5)
  1. EFFEXOR [Suspect]
     Active Substance: VENLAFAXINE HYDROCHLORIDE
     Dosage: 25 MG, 1X/DAY
     Dates: start: 20160812
  2. EFFEXOR [Suspect]
     Active Substance: VENLAFAXINE HYDROCHLORIDE
     Dosage: 12.5 MG, 1X/DAY
  3. EFFEXOR XR [Suspect]
     Active Substance: VENLAFAXINE HYDROCHLORIDE
     Dosage: 37.5 MG, UNK
     Dates: end: 201609
  4. EFFEXOR [Suspect]
     Active Substance: VENLAFAXINE HYDROCHLORIDE
     Dosage: 3.125 MG, 1X/DAY
     Dates: end: 20160926
  5. EFFEXOR XR [Suspect]
     Active Substance: VENLAFAXINE HYDROCHLORIDE
     Indication: ANXIETY
     Dosage: 75 MG, UNK
     Dates: start: 200712

REACTIONS (3)
  - Drug dose omission [Recovering/Resolving]
  - Vertigo [Recovering/Resolving]
  - Withdrawal syndrome [Recovering/Resolving]
